FAERS Safety Report 10067193 (Version 1)
Quarter: 2014Q2

REPORT INFORMATION
  Report Type: Spontaneous
  Country: US (occurrence: None)
  Receive Date: 20140408
  Receipt Date: 20140408
  Transmission Date: 20141212
  Serious: Yes (Other)
  Sender: FDA-Public Use
  Company Number: None

PATIENT
  Age: 5 Year
  Sex: Male
  Weight: 21.77 kg

DRUGS (2)
  1. CEFPROZIL [Suspect]
     Indication: STREPTOCOCCAL INFECTION
     Dosage: 1  1/2 TEASPOONFUL?
     Route: 048
  2. CEFPROZIL [Suspect]
     Indication: PHARYNGITIS
     Dosage: 1  1/2 TEASPOONFUL?
     Route: 048

REACTIONS (2)
  - Penile discharge [None]
  - Penile pain [None]
